FAERS Safety Report 11064978 (Version 2)
Quarter: 2015Q2

REPORT INFORMATION
  Report Type: Spontaneous
  Country: US (occurrence: US)
  Receive Date: 20150424
  Receipt Date: 20150524
  Transmission Date: 20150821
  Serious: No
  Sender: FDA-Public Use
  Company Number: US-JNJFOC-20150217826

PATIENT
  Sex: Male

DRUGS (1)
  1. WATSON METHLYPHENIDATE [Suspect]
     Active Substance: METHYLPHENIDATE
     Indication: BRAIN INJURY
     Route: 048

REACTIONS (2)
  - Drug dose omission [Unknown]
  - Product use issue [Unknown]

NARRATIVE: CASE EVENT DATE: 20150215
